FAERS Safety Report 18193417 (Version 3)
Quarter: 2025Q3

REPORT INFORMATION
  Report Type: Spontaneous
  Country: EU (occurrence: EU)
  Receive Date: 20200825
  Receipt Date: 20250813
  Transmission Date: 20251020
  Serious: Yes (Life-Threatening, Hospitalization, Other)
  Sender: MSN LABORATORIES PRIVATE LIMITED
  Company Number: EU-STADA-205237

PATIENT

DRUGS (3)
  1. PREGABALIN [Suspect]
     Active Substance: PREGABALIN
     Indication: Product used for unknown indication
     Route: 065
  2. CLONAZEPAM [Suspect]
     Active Substance: CLONAZEPAM
     Indication: Product used for unknown indication
     Route: 065
  3. MIDOMAFETAMINE [Suspect]
     Active Substance: MIDOMAFETAMINE
     Indication: Product used for unknown indication
     Route: 065

REACTIONS (21)
  - Rhabdomyolysis [Recovered/Resolved]
  - Mydriasis [Recovered/Resolved]
  - Hepatic failure [Recovered/Resolved]
  - Nervous system disorder [Recovered/Resolved]
  - Dehydration [Recovered/Resolved]
  - Generalised tonic-clonic seizure [Recovered/Resolved]
  - Renal failure [Recovered/Resolved]
  - Hyperpyrexia [Recovered/Resolved]
  - Haemorrhage [Recovered/Resolved]
  - Hyperthermia [Recovered/Resolved]
  - Tachycardia [Recovered/Resolved]
  - Gastrointestinal haemorrhage [Recovered/Resolved]
  - Coagulopathy [Recovered/Resolved]
  - Haemoglobin decreased [Recovered/Resolved]
  - Blood lactic acid increased [Recovered/Resolved]
  - Toxicity to various agents [Recovered/Resolved]
  - Drug abuse [Recovered/Resolved]
  - Muscle haemorrhage [Unknown]
  - Acute kidney injury [Recovered/Resolved]
  - Platelet count decreased [Recovered/Resolved]
  - Hypoglycaemia [Recovered/Resolved]
